FAERS Safety Report 10510328 (Version 1)
Quarter: 2014Q4

REPORT INFORMATION
  Report Type: Spontaneous
  Country: US (occurrence: US)
  Receive Date: 20141010
  Receipt Date: 20141010
  Transmission Date: 20150528
  Serious: No
  Sender: FDA-Public Use
  Company Number: US-TEVA-492648USA

PATIENT
  Age: 35 Year
  Sex: Male

DRUGS (4)
  1. REFRESH [Suspect]
     Active Substance: UNSPECIFIED INGREDIENT
     Indication: DRY EYE
     Route: 047
     Dates: start: 20140604
  2. REVATIO [Concomitant]
     Active Substance: SILDENAFIL CITRATE
     Indication: PULMONARY HYPERTENSION
  3. REFRESH P.M. [Concomitant]
     Active Substance: MINERAL OIL\PETROLATUM
     Indication: DRY EYE
  4. SILDENAFIL. [Suspect]
     Active Substance: SILDENAFIL
     Indication: PULMONARY HYPERTENSION

REACTIONS (1)
  - Contusion [Unknown]

NARRATIVE: CASE EVENT DATE: 20140608
